FAERS Safety Report 13859898 (Version 4)
Quarter: 2017Q3

REPORT INFORMATION
  Report Type: Report from Study
  Country: IE (occurrence: IE)
  Receive Date: 20170811
  Receipt Date: 20170905
  Transmission Date: 20171127
  Serious: Yes (Hospitalization)
  Sender: FDA-Public Use
  Company Number: IE-TAKEDA-2017MPI006791

PATIENT
  Age: 76 Year
  Sex: Female

DRUGS (17)
  1. CALCICHEW [Concomitant]
     Active Substance: CALCIUM CARBONATE
     Dosage: 1000 MG, BID
     Route: 050
  2. ALPRAZOLAM. [Concomitant]
     Active Substance: ALPRAZOLAM
     Dosage: 250 UG, UNK
     Route: 050
  3. LANSOPRAZOLE. [Concomitant]
     Active Substance: LANSOPRAZOLE
     Dosage: 30 MG, QD
     Route: 050
  4. VELCADE [Suspect]
     Active Substance: BORTEZOMIB
     Indication: PLASMA CELL MYELOMA
     Dosage: 1.3 MG/M2, UNK
     Route: 058
     Dates: start: 20170509
  5. QUININE SULPHATE [Concomitant]
     Active Substance: QUININE SULFATE
     Dosage: 300 MG, UNK
     Route: 050
  6. BUTRANS [Concomitant]
     Active Substance: BUPRENORPHINE
     Dosage: 7.5 UG, 1/WEEK
     Route: 050
  7. VELCADE [Suspect]
     Active Substance: BORTEZOMIB
     Dosage: 1.3 MG/M2, UNK
     Route: 058
  8. DOMPERIDONE [Concomitant]
     Active Substance: DOMPERIDONE
     Dosage: 10 MG, UNK
     Route: 050
  9. VALTREX [Concomitant]
     Active Substance: VALACYCLOVIR HYDROCHLORIDE
     Dosage: 500 MG, BID
     Route: 050
  10. PROCAL                             /00168201/ [Concomitant]
     Dosage: 30 MG, QD
     Route: 050
  11. PALEXIA [Concomitant]
     Active Substance: TAPENTADOL HYDROCHLORIDE
     Dosage: 50 MG, UNK
     Route: 050
  12. ATORVASTATIN [Concomitant]
     Active Substance: ATORVASTATIN
     Dosage: 10 MG, QD
     Route: 050
  13. ZOPICLONE [Concomitant]
     Active Substance: ZOPICLONE
     Dosage: 3.75 MG, UNK
     Route: 050
  14. RIVAROXABAN [Concomitant]
     Active Substance: RIVAROXABAN
     Dosage: 20 MG, QD
     Route: 050
  15. PREDNISOLONE. [Concomitant]
     Active Substance: PREDNISOLONE
     Dosage: 90 MG, QD
     Route: 050
  16. MELPHALAN. [Suspect]
     Active Substance: MELPHALAN
     Indication: PLASMA CELL MYELOMA
     Dosage: UNK
     Route: 065
  17. ESCITALOPRAM [Concomitant]
     Active Substance: ESCITALOPRAM OXALATE
     Dosage: 15 MG, QD
     Route: 050

REACTIONS (6)
  - Fall [Unknown]
  - Vomiting [Unknown]
  - Alopecia [Not Recovered/Not Resolved]
  - Mass [Not Recovered/Not Resolved]
  - Contusion [Unknown]
  - Pollakiuria [Unknown]

NARRATIVE: CASE EVENT DATE: 2017
